FAERS Safety Report 22134681 (Version 1)
Quarter: 2023Q1

REPORT INFORMATION
  Report Type: Other
  Country: US (occurrence: None)
  Receive Date: 20230324
  Receipt Date: 20230324
  Transmission Date: 20230418
  Serious: Yes (Other)
  Sender: FDA-Public Use
  Company Number: US-ROCHE-3314941

PATIENT
  Age: 66 Year
  Sex: Male

DRUGS (6)
  1. ZELBORAF [Suspect]
     Active Substance: VEMURAFENIB
     Indication: Malignant melanoma
     Route: 048
  2. ZELBORAF [Suspect]
     Active Substance: VEMURAFENIB
     Indication: Lymphoma
  3. ZELBORAF [Suspect]
     Active Substance: VEMURAFENIB
     Indication: Metastases to bone
  4. ZELBORAF [Suspect]
     Active Substance: VEMURAFENIB
     Indication: Metastases to liver
  5. ZELBORAF [Suspect]
     Active Substance: VEMURAFENIB
     Indication: Hepatic cancer
  6. COTELLIC [Suspect]
     Active Substance: COBIMETINIB
     Indication: Product used for unknown indication
     Dosage: 20MG BY MOUTH ON DAYS 1-21 OF 28D CYCLE
     Route: 048

REACTIONS (1)
  - Deafness [Unknown]
